FAERS Safety Report 6312046-7 (Version None)
Quarter: 2009Q3

REPORT INFORMATION
  Report Type: 
  Country: None (occurrence: None)
  Receive Date: 20090817
  Receipt Date: 20090807
  Transmission Date: 20100115
  Serious: Yes (Other)
  Sender: FDA-Public Use
  Company Number: US-AMGEN-QUU357023

PATIENT
  Sex: Female
  Weight: 68.1 kg

DRUGS (6)
  1. ENBREL [Suspect]
     Indication: PSORIASIS
     Route: 058
     Dates: start: 20031027
  2. VITAMIN TAB [Concomitant]
     Route: 048
     Dates: start: 20090601, end: 20090718
  3. LIPITOR [Concomitant]
     Route: 048
     Dates: start: 20030101, end: 20090615
  4. ADIPEX [Concomitant]
     Route: 048
     Dates: start: 20090101, end: 20090610
  5. MULTI-VITAMINS [Concomitant]
     Route: 048
     Dates: start: 20010101, end: 20090617
  6. ORAL CONTRACEPTIVE NOS [Concomitant]
     Route: 048
     Dates: start: 20060201, end: 20090401

REACTIONS (1)
  - ABORTION SPONTANEOUS [None]
